FAERS Safety Report 11227992 (Version 1)
Quarter: 2015Q2

REPORT INFORMATION
  Report Type: Report from Study
  Country: GB (occurrence: GB)
  Receive Date: 20150630
  Receipt Date: 20150630
  Transmission Date: 20150821
  Serious: Yes (Hospitalization)
  Sender: FDA-Public Use
  Company Number: GB-JNJFOC-20150616668

PATIENT
  Age: 15 Year
  Sex: Male
  Weight: 34 kg

DRUGS (2)
  1. AZATHIOPRINE. [Concomitant]
     Active Substance: AZATHIOPRINE
     Route: 065
  2. REMICADE [Suspect]
     Active Substance: INFLIXIMAB
     Indication: CROHN^S DISEASE
     Route: 042
     Dates: start: 20110615

REACTIONS (4)
  - Drain removal [Recovered/Resolved with Sequelae]
  - Wound infection [Not Recovered/Not Resolved]
  - Colitis [Recovered/Resolved]
  - Drain placement [Not Recovered/Not Resolved]

NARRATIVE: CASE EVENT DATE: 20150323
